FAERS Safety Report 6211691-7 (Version None)
Quarter: 2009Q2

REPORT INFORMATION
  Report Type: 
  Country: None (occurrence: None)
  Receive Date: 20090602
  Receipt Date: 20090526
  Transmission Date: 20091009
  Serious: Yes (Life-Threatening)
  Sender: FDA-Public Use
  Company Number: B0574254A

PATIENT
  Sex: Male

DRUGS (3)
  1. SULTANOL [Suspect]
     Indication: ASTHMA
     Dosage: 100MCG PER DAY
     Route: 055
     Dates: start: 20090423, end: 20090423
  2. SULTANOL [Suspect]
     Dosage: 300MCG PER DAY
     Route: 055
     Dates: start: 20090424, end: 20090424
  3. ALESION [Suspect]
     Indication: DRUG USE FOR UNKNOWN INDICATION
     Route: 048

REACTIONS (4)
  - CARDIO-RESPIRATORY ARREST [None]
  - DYSPNOEA [None]
  - SNORING [None]
  - VENTRICULAR FIBRILLATION [None]
